FAERS Safety Report 8239659-X (Version None)
Quarter: 2012Q1

REPORT INFORMATION
  Report Type: 
  Country: None (occurrence: None)
  Receive Date: 20120328
  Receipt Date: 20120319
  Transmission Date: 20120608
  Serious: Yes (Other)
  Sender: FDA-Public Use
  Company Number: US-UCBSA-053689

PATIENT
  Age: 13 Year
  Sex: Male
  Weight: 33.1 kg

DRUGS (10)
  1. VIMPAT [Suspect]
     Indication: CONVULSION
     Dosage: 100 MG IN AM AND 125 MG IN PM
     Route: 048
     Dates: start: 20120227
  2. ZARONTIN [Concomitant]
     Indication: CONVULSION
     Dosage: DOSE: 7 ML OF 250/5 ML
     Route: 048
     Dates: start: 20110101
  3. OMEGA 3 VITAMIN [Concomitant]
     Indication: SUPPLEMENTATION THERAPY
     Route: 048
     Dates: start: 20100101
  4. CALCIUM CARBONATE [Concomitant]
     Indication: SUPPLEMENTATION THERAPY
     Route: 048
     Dates: start: 20100101
  5. VITAMIN B6 [Concomitant]
     Indication: SUPPLEMENTATION THERAPY
     Route: 048
     Dates: start: 20100101
  6. CATAPRES [Concomitant]
     Indication: FEELING OF RELAXATION
     Dosage: DOSE : 1/2 OF 0.1 MG AT HS
     Route: 048
     Dates: start: 20110101
  7. MULTI-VITAMIN [Concomitant]
     Indication: SUPPLEMENTATION THERAPY
     Route: 048
     Dates: start: 20100101
  8. VIMPAT [Suspect]
     Dosage: UNKNOWN DOSE
     Dates: start: 20110701
  9. VITAMIN D [Concomitant]
     Indication: SUPPLEMENTATION THERAPY
     Route: 048
     Dates: start: 20100101
  10. DEPAKOTE [Concomitant]
     Indication: CONVULSION
     Dosage: 750 MG IN AM AND 875 MG IN PM
     Route: 048
     Dates: start: 20110101

REACTIONS (5)
  - LOSS OF CONSCIOUSNESS [None]
  - FALL [None]
  - CONVULSION [None]
  - FEELING DRUNK [None]
  - ATONIC SEIZURES [None]
